FAERS Safety Report 16831870 (Version 1)
Quarter: 2019Q3

REPORT INFORMATION
  Report Type: Spontaneous
  Country: FR (occurrence: FR)
  Receive Date: 20190920
  Receipt Date: 20190920
  Transmission Date: 20191005
  Serious: Yes (Hospitalization)
  Sender: FDA-Public Use
  Company Number: FR-ACCORD-155186

PATIENT
  Age: 85 Year
  Sex: Female
  Weight: 61 kg

DRUGS (9)
  1. BECLOMETASONE [Concomitant]
     Active Substance: BECLOMETHASONE DIPROPIONATE
  2. VALSARTAN. [Concomitant]
     Active Substance: VALSARTAN
  3. LERCAN [Concomitant]
     Active Substance: LERCANIDIPINE
     Dosage: STRENGTH: 10 MG
  4. MONTELUKAST [Concomitant]
     Active Substance: MONTELUKAST SODIUM
  5. CLOPIDOGREL [Suspect]
     Active Substance: CLOPIDOGREL BISULFATE
     Indication: PROPHYLAXIS
     Route: 048
     Dates: start: 2003, end: 20190714
  6. FORMOTEROL [Concomitant]
     Active Substance: FORMOTEROL
  7. LASILIX [Concomitant]
     Active Substance: FUROSEMIDE
  8. RILMENIDINE/RILMENIDINE PHOSPHATE [Concomitant]
  9. LANTUS [Concomitant]
     Active Substance: INSULIN GLARGINE

REACTIONS (1)
  - Haemorrhagic stroke [Recovering/Resolving]

NARRATIVE: CASE EVENT DATE: 20190714
